FAERS Safety Report 7514154-1 (Version None)
Quarter: 2011Q2

REPORT INFORMATION
  Report Type: 
  Country: None (occurrence: None)
  Receive Date: 20110531
  Receipt Date: 20110523
  Transmission Date: 20111010
  Serious: Yes (Other)
  Sender: FDA-Public Use
  Company Number: GB-ABBOTT-08P-167-0432069-00

PATIENT
  Age: 56 Year
  Sex: Male

DRUGS (3)
  1. FENOFIBRATE [Suspect]
     Indication: LIPIDS ABNORMAL
  2. ATORVASTATIN [Interacting]
     Indication: TYPE IIA HYPERLIPIDAEMIA
  3. ATORVASTATIN [Interacting]
     Indication: HEPATIC STEATOSIS

REACTIONS (2)
  - DRUG INTERACTION [None]
  - HIGH DENSITY LIPOPROTEIN DECREASED [None]
